FAERS Safety Report 19574193 (Version 1)
Quarter: 2021Q3

REPORT INFORMATION
  Report Type: Spontaneous
  Country: US (occurrence: US)
  Receive Date: 20210719
  Receipt Date: 20210719
  Transmission Date: 20211014
  Serious: Yes (Other)
  Sender: FDA-Public Use
  Company Number: US-SUN PHARMACEUTICAL INDUSTRIES LTD-2021R1-296192

PATIENT
  Sex: Female
  Weight: 55.78 kg

DRUGS (1)
  1. EPOPROSTENOL. [Suspect]
     Active Substance: EPOPROSTENOL
     Indication: PULMONARY ARTERIAL HYPERTENSION
     Dosage: 122 NG/KG/MIN, CONTINUOUS
     Route: 042
     Dates: start: 20210316

REACTIONS (8)
  - Flushing [Unknown]
  - Diarrhoea [Unknown]
  - Headache [Unknown]
  - Osteoporosis [Unknown]
  - Nausea [Unknown]
  - Pain in jaw [Unknown]
  - Pain in extremity [Unknown]
  - Abdominal discomfort [Unknown]
